FAERS Safety Report 4579201-8 (Version None)
Quarter: 2005Q1

REPORT INFORMATION
  Report Type: 
  Country: None (occurrence: None)
  Receive Date: 20050209
  Receipt Date: 20050209
  Transmission Date: 20050727
  Serious: Yes (Other)
  Sender: FDA-Public Use
  Company Number: None

PATIENT
  Age: 31 Year
  Sex: Female
  Weight: 61.2356 kg

DRUGS (1)
  1. CLOMID [Suspect]
     Indication: ANOVULATORY CYCLE
     Dosage: 150 MG   DAILY DAYS 3-7   ORAL
     Route: 048
     Dates: start: 20041016, end: 20041021

REACTIONS (1)
  - MULTIPLE PREGNANCY [None]
